FAERS Safety Report 9862863 (Version 1)
Quarter: 2014Q1

REPORT INFORMATION
  Report Type: Spontaneous
  Country: US (occurrence: US)
  Receive Date: 20140203
  Receipt Date: 20140203
  Transmission Date: 20141002
  Serious: Yes (Death)
  Sender: FDA-Public Use
  Company Number: CHPA2014US001573

PATIENT
  Age: 47 Year
  Sex: Female

DRUGS (6)
  1. ACETAMINOPHEN (PARACETAMOL) [Suspect]
     Route: 048
  2. METHADONE [Suspect]
     Route: 048
  3. OXYCODONE [Suspect]
     Route: 048
  4. DIAZEPAM [Suspect]
     Route: 048
  5. DOXYLAMINE [Suspect]
     Route: 048
  6. AMITRIPTYLINE [Suspect]
     Route: 048

REACTIONS (1)
  - Intentional drug misuse [Fatal]
